FAERS Safety Report 11019571 (Version 2)
Quarter: 2015Q2

REPORT INFORMATION
  Report Type: Spontaneous
  Country: US (occurrence: US)
  Receive Date: 20150412
  Receipt Date: 20150525
  Transmission Date: 20150821
  Serious: No
  Sender: FDA-Public Use
  Company Number: US-JNJFOC-20130916425

PATIENT

DRUGS (5)
  1. LEVAQUIN [Suspect]
     Active Substance: LEVOFLOXACIN
     Indication: CUTANEOUS SARCOIDOSIS
     Dosage: DAY 1
     Route: 065
  2. ETHAMBUTOL [Suspect]
     Active Substance: ETHAMBUTOL HYDROCHLORIDE
     Indication: CUTANEOUS SARCOIDOSIS
     Dosage: UPTO A MAXIMUM DOSAGE OF 1200 MG PER DAY
     Route: 065
  3. AZITHROMYCIN [Suspect]
     Active Substance: AZITHROMYCIN ANHYDROUS
     Indication: CUTANEOUS SARCOIDOSIS
     Route: 065
  4. RIFAMPIN. [Suspect]
     Active Substance: RIFAMPIN
     Indication: CUTANEOUS SARCOIDOSIS
     Dosage: UPTO A MAXIMUM DOSAGE OF 300 MG/DAY
     Route: 065
  5. AZITHROMYCIN [Suspect]
     Active Substance: AZITHROMYCIN ANHYDROUS
     Indication: CUTANEOUS SARCOIDOSIS
     Dosage: ON DAY 1
     Route: 065

REACTIONS (1)
  - Diarrhoea [Unknown]
